FAERS Safety Report 6408694-6 (Version None)
Quarter: 2009Q4

REPORT INFORMATION
  Report Type: 
  Country: None (occurrence: None)
  Receive Date: 20091021
  Receipt Date: 20091013
  Transmission Date: 20100525
  Serious: Yes (Other)
  Sender: FDA-Public Use
  Company Number: CN-JNJFOC-20091004169

PATIENT
  Age: 3 Year
  Sex: Female

DRUGS (1)
  1. ANTUSS INFANTS' DECONGESTANT + COUGH [Suspect]
     Indication: ACCIDENTAL EXPOSURE
     Route: 048

REACTIONS (2)
  - ACCIDENTAL OVERDOSE [None]
  - VOMITING [None]
